FAERS Safety Report 4372964-6 (Version None)
Quarter: 2004Q2

REPORT INFORMATION
  Report Type: 
  Country: None (occurrence: None)
  Receive Date: 20040603
  Receipt Date: 20040520
  Transmission Date: 20050107
  Serious: Yes (Hospitalization)
  Sender: FDA-Public Use
  Company Number: 2004214612US

PATIENT
  Age: 52 Year
  Sex: Female
  Weight: 90.2 kg

DRUGS (11)
  1. ELLENCE [Suspect]
     Indication: BREAST CANCER
     Dosage: 145.5 MG, EVERY 3 WEEKS, CYCLIC,
     Dates: start: 20040324
  2. COMPARATOR-DOCETAXEL (DOCETAXEL) INJECTION [Suspect]
     Indication: BREAST CANCER
     Dosage: SEE IMAGE
     Dates: start: 20040324
  3. CYCLOPHOSPHAMIDE [Suspect]
     Indication: BREAST CANCER
     Dosage: 970 MG, EVERY 3 WEEKS, CYCLIC,
     Dates: start: 20040324
  4. COMPARATOR-PEGFILGRASTIM (PEGFILGRASTIM) INJECTION [Suspect]
     Indication: BREAST CANCER
     Dosage: 6 MG, EVERY 3 WEEKS, CYCLIC,
     Dates: start: 20040331
  5. COUMADIN [Concomitant]
  6. PENICILLIN-VK [Concomitant]
  7. XANAX [Concomitant]
  8. LOPID [Concomitant]
  9. DECADRON [Concomitant]
  10. ESTRACE [Concomitant]
  11. MULTIVITAMINS (ERGOCALCIFEROL, RETINOL, PANTHENOL) [Concomitant]

REACTIONS (28)
  - AORTIC ATHEROSCLEROSIS [None]
  - AORTIC VALVE INCOMPETENCE [None]
  - BLOOD CREATININE DECREASED [None]
  - BLOOD GLUCOSE INCREASED [None]
  - BLOOD PRESSURE SYSTOLIC INCREASED [None]
  - BLOOD UREA DECREASED [None]
  - CHEST PAIN [None]
  - DECREASED APPETITE [None]
  - DEHYDRATION [None]
  - DIARRHOEA [None]
  - DILATATION VENTRICULAR [None]
  - DRUG INEFFECTIVE [None]
  - DYSPNOEA [None]
  - EJECTION FRACTION DECREASED [None]
  - ELECTROCARDIOGRAM ST SEGMENT DEPRESSION [None]
  - HYPERHIDROSIS [None]
  - HYPOKALAEMIA [None]
  - MITRAL VALVE INCOMPETENCE [None]
  - NAUSEA [None]
  - NEUTROPENIA [None]
  - PAIN [None]
  - PCO2 DECREASED [None]
  - SINUS TACHYCARDIA [None]
  - TACHYCARDIA [None]
  - TOOTH ABSCESS [None]
  - VAGINAL CANDIDIASIS [None]
  - VENTRICULAR HYPERTROPHY [None]
  - WHITE BLOOD CELL COUNT DECREASED [None]
